FAERS Safety Report 9681306 (Version 1)
Quarter: 2013Q4

REPORT INFORMATION
  Report Type: Report from Study
  Country: US (occurrence: US)
  Receive Date: 20131111
  Receipt Date: 20131111
  Transmission Date: 20140711
  Serious: Yes (Hospitalization)
  Sender: FDA-Public Use
  Company Number: US-ABBVIE-13P-163-1166645-00

PATIENT
  Age: 58 Year
  Sex: Female
  Weight: 86.26 kg

DRUGS (13)
  1. HUMIRA [Suspect]
     Indication: SARCOIDOSIS
     Route: 058
     Dates: start: 201302, end: 201306
  2. HUMIRA [Suspect]
     Dates: start: 201306, end: 201308
  3. METHOTREXATE [Concomitant]
     Indication: SARCOIDOSIS
  4. TOPROL [Concomitant]
     Indication: HYPERTENSION
  5. CITALOPRAM [Concomitant]
     Indication: DEPRESSION
  6. PANTOPRAZOLE [Concomitant]
     Indication: GASTROOESOPHAGEAL REFLUX DISEASE
  7. LORATADINE [Concomitant]
     Indication: SEASONAL ALLERGY
  8. SYNTHROID [Concomitant]
     Indication: HYPOTHYROIDISM
  9. NOVOLOG [Concomitant]
     Indication: DIABETES MELLITUS
  10. SINGULAIR [Concomitant]
     Indication: SEASONAL ALLERGY
  11. CRESTOR [Concomitant]
     Indication: BLOOD CHOLESTEROL INCREASED
  12. NORCO [Concomitant]
     Indication: PAIN
     Dosage: PRN
  13. NORCO [Concomitant]
     Indication: SARCOIDOSIS

REACTIONS (4)
  - Oesophageal mass [Recovered/Resolved]
  - Pharyngeal oedema [Recovered/Resolved]
  - Oesophageal infection [Recovered/Resolved]
  - Cystitis [Recovered/Resolved]
